FAERS Safety Report 18251143 (Version 1)
Quarter: 2020Q3

REPORT INFORMATION
  Report Type: Spontaneous
  Country: US (occurrence: US)
  Receive Date: 20200910
  Receipt Date: 20200910
  Transmission Date: 20201103
  Serious: No
  Sender: FDA-Public Use
  Company Number: US-BAUSCH-BL-2020-025213

PATIENT
  Sex: Female

DRUGS (2)
  1. WELLBUTRIN XL [Suspect]
     Active Substance: BUPROPION HYDROCHLORIDE
     Indication: PRODUCT USED FOR UNKNOWN INDICATION
     Route: 065
     Dates: start: 2018
  2. GABAPENTIN. [Concomitant]
     Active Substance: GABAPENTIN
     Indication: NEURALGIA

REACTIONS (4)
  - Judgement impaired [Unknown]
  - Hostility [Unknown]
  - Memory impairment [Unknown]
  - Anger [Unknown]
